FAERS Safety Report 11328684 (Version 1)
Quarter: 2015Q3

REPORT INFORMATION
  Report Type: Spontaneous
  Country: DE (occurrence: DE)
  Receive Date: 20150731
  Receipt Date: 20150731
  Transmission Date: 20151125
  Serious: Yes (Other)
  Sender: FDA-Public Use
  Company Number: GXKR2015DE002898

PATIENT
  Age: 61 Year
  Sex: Female
  Weight: 90 kg

DRUGS (1)
  1. ESTRAMON CONTI [Suspect]
     Active Substance: ESTRADIOL\NORETHINDRONE ACETATE
     Indication: MENOPAUSAL SYMPTOMS
     Dosage: 1 DF, UNK
     Route: 062

REACTIONS (5)
  - Hyperhidrosis [Unknown]
  - Hyperhidrosis [Recovered/Resolved]
  - Genital haemorrhage [Recovered/Resolved]
  - Drug ineffective [Recovered/Resolved]
  - Genital haemorrhage [Unknown]

NARRATIVE: CASE EVENT DATE: 20150520
